FAERS Safety Report 24539985 (Version 1)
Quarter: 2024Q4

REPORT INFORMATION
  Report Type: Spontaneous
  Country: KW (occurrence: KW)
  Receive Date: 20241023
  Receipt Date: 20241023
  Transmission Date: 20250115
  Serious: Yes (Hospitalization)
  Sender: ULTRAGENYX PHARMACEUTICAL
  Company Number: KW-UGX-2400933

PATIENT
  Age: 8 Year
  Sex: Female
  Weight: 21 kg

DRUGS (3)
  1. DOJOLVI [Suspect]
     Active Substance: TRIHEPTANOIN
     Indication: Very long-chain acyl-coenzyme A dehydrogenase deficiency
     Dosage: 40 MILLILITER, QD (4 TIMES PER DAY WITH FOOD)
     Route: 048
     Dates: start: 202406
  2. DOJOLVI [Suspect]
     Active Substance: TRIHEPTANOIN
     Dosage: 20 MILLILITER, QD (4 TIMES PER DAY WITH FOOD)
     Route: 048
     Dates: start: 20241010
  3. DEXTROSE [Concomitant]
     Active Substance: DEXTROSE MONOHYDRATE
     Indication: Product used for unknown indication
     Route: 042

REACTIONS (4)
  - Pancreatitis acute [Unknown]
  - Abdominal pain [Unknown]
  - Blood creatine phosphokinase increased [Unknown]
  - Drug tolerance decreased [Unknown]

NARRATIVE: CASE EVENT DATE: 20241001
